FAERS Safety Report 8811452 (Version 1)
Quarter: 2012Q4

REPORT INFORMATION
  Report Type: 
  Country: GB (occurrence: GB)
  Receive Date: 20120927
  Receipt Date: 20120927
  Transmission Date: 20130627
  Serious: Yes (Life-Threatening)
  Sender: FDA-Public Use
  Company Number: GB-BRISTOL-MYERS SQUIBB COMPANY-16975146

PATIENT
  Age: 40 Year
  Sex: Female

DRUGS (1)
  1. ABILIFY TABS [Suspect]

REACTIONS (1)
  - Adverse event [Unknown]
